FAERS Safety Report 7435861-5 (Version None)
Quarter: 2011Q2

REPORT INFORMATION
  Report Type: 
  Country: None (occurrence: None)
  Receive Date: 20110425
  Receipt Date: 20110414
  Transmission Date: 20111010
  Serious: Yes (Other)
  Sender: FDA-Public Use
  Company Number: US-BAXTER-2011BH005553

PATIENT
  Age: 53 Year
  Sex: Male

DRUGS (4)
  1. DIANEAL [Suspect]
     Indication: PERITONEAL DIALYSIS
     Route: 033
     Dates: start: 20090101, end: 20110307
  2. DIANEAL [Suspect]
     Route: 033
     Dates: start: 20110402
  3. DIANEAL [Suspect]
     Route: 033
     Dates: start: 20110402
  4. DIANEAL [Suspect]
     Route: 033
     Dates: start: 20090101, end: 20110307

REACTIONS (1)
  - HERNIA [None]
